FAERS Safety Report 13665960 (Version 16)
Quarter: 2020Q3

REPORT INFORMATION
  Report Type: Report from Study
  Country: CO (occurrence: CO)
  Receive Date: 20170619
  Receipt Date: 20200829
  Transmission Date: 20201102
  Serious: Yes (Death, Life-Threatening, Other)
  Sender: FDA-Public Use
  Company Number: PHHY2017CO090376

PATIENT
  Age: 49 Year
  Sex: Female
  Weight: 53 kg

DRUGS (5)
  1. LEVOTHYROXINE. [Concomitant]
     Active Substance: LEVOTHYROXINE
     Indication: HYPOTHYROIDISM
     Dosage: 75 UG, QD
     Route: 065
     Dates: start: 2005
  2. VITAMIN D3 [Concomitant]
     Active Substance: CHOLECALCIFEROL
     Indication: PROPHYLAXIS
     Dosage: 2000 IU, QD
     Route: 065
     Dates: start: 2009
  3. GILENYA [Suspect]
     Active Substance: FINGOLIMOD HYDROCHLORIDE
     Indication: MULTIPLE SCLEROSIS
     Dosage: 0.5 MG, QD
     Route: 048
     Dates: start: 20130829, end: 20170616
  4. CALCIUM [Concomitant]
     Active Substance: CALCIUM
     Indication: PROPHYLAXIS
     Dosage: 600 MG, QD
     Route: 048
     Dates: start: 201303
  5. METFORMIN [Suspect]
     Active Substance: METFORMIN HYDROCHLORIDE
     Indication: CARBOHYDRATE INTOLERANCE
     Dosage: 850 MG, UNK
     Route: 065
     Dates: start: 2011

REACTIONS (8)
  - Breast sarcoma metastatic [Not Recovered/Not Resolved]
  - Breast cancer [Unknown]
  - Metastases to lung [Fatal]
  - Metastases to liver [Fatal]
  - Respiratory failure [Fatal]
  - Cardiac arrest [Fatal]
  - Gene mutation [Not Recovered/Not Resolved]
  - Breast mass [Unknown]

NARRATIVE: CASE EVENT DATE: 20170415
